FAERS Safety Report 24612700 (Version 2)
Quarter: 2024Q4

REPORT INFORMATION
  Report Type: Spontaneous
  Country: GB (occurrence: GB)
  Receive Date: 20241113
  Receipt Date: 20241203
  Transmission Date: 20250114
  Serious: Yes (Disabling, Other)
  Sender: TORRENT PHARMA INC.
  Company Number: None

PATIENT
  Age: 33 Year
  Sex: Female
  Weight: 58 kg

DRUGS (2)
  1. DULOXETINE [Suspect]
     Active Substance: DULOXETINE
     Indication: Anxiety
     Dosage: 30MG
     Route: 065
     Dates: end: 20241102
  2. DULOXETINE [Concomitant]
     Active Substance: DULOXETINE
     Indication: Stress
     Dosage: UNKNOWN
     Route: 065

REACTIONS (5)
  - Product prescribing error [Unknown]
  - Nausea [Not Recovered/Not Resolved]
  - Malaise [Unknown]
  - Vomiting [Unknown]
  - Decreased appetite [Unknown]
